FAERS Safety Report 5255757-7 (Version None)
Quarter: 2007Q1

REPORT INFORMATION
  Report Type: 
  Country: None (occurrence: None)
  Receive Date: 20070301
  Receipt Date: 20070110
  Transmission Date: 20070707
  Serious: Yes (Hospitalization)
  Sender: FDA-Public Use
  Company Number: 149063ISR

PATIENT
  Age: 52 Year
  Sex: Male

DRUGS (4)
  1. EQUORAL 100 MG (CICLOSPORIN) [Suspect]
     Indication: IMMUNOSUPPRESSION
     Dosage: SEE IMAGE
     Route: 048
     Dates: start: 20060703, end: 20060918
  2. EQUORAL 100 MG (CICLOSPORIN) [Suspect]
     Indication: IMMUNOSUPPRESSION
     Dosage: SEE IMAGE
     Route: 048
     Dates: start: 20061029
  3. ANTIHYPERTENSIVES [Concomitant]
  4. IMMUNOSUPPRESSIVE AGENTS [Concomitant]

REACTIONS (6)
  - CARDIAC VALVE VEGETATION [None]
  - CEREBRAL THROMBOSIS [None]
  - CEREBROVASCULAR ACCIDENT [None]
  - KIDNEY TRANSPLANT REJECTION [None]
  - RENAL FAILURE ACUTE [None]
  - TUBULOINTERSTITIAL NEPHRITIS [None]
